FAERS Safety Report 6897288-4 (Version None)
Quarter: 2010Q3

REPORT INFORMATION
  Report Type: 
  Country: None (occurrence: None)
  Receive Date: 20100802
  Receipt Date: 20070511
  Transmission Date: 20110219
  Serious: No
  Sender: FDA-Public Use
  Company Number: US-PFIZER INC-2007029032

PATIENT
  Sex: Female

DRUGS (7)
  1. LYRICA [Suspect]
     Indication: ARTHRALGIA
     Dates: start: 20060112, end: 20070405
  2. PLAVIX [Concomitant]
  3. COREG [Concomitant]
  4. PEPCID [Concomitant]
  5. CLARITIN [Concomitant]
  6. AMBIEN [Concomitant]
  7. NITROGLYCERIN [Concomitant]
     Route: 060

REACTIONS (4)
  - ASTHENIA [None]
  - INFLUENZA LIKE ILLNESS [None]
  - NAUSEA [None]
  - NERVOUSNESS [None]
